FAERS Safety Report 22201255 (Version 2)
Quarter: 2023Q2

REPORT INFORMATION
  Report Type: Spontaneous
  Country: JP (occurrence: JP)
  Receive Date: 20230412
  Receipt Date: 20230426
  Transmission Date: 20230721
  Serious: Yes (Hospitalization, Other)
  Sender: FDA-Public Use
  Company Number: JP-BRISTOL-MYERS SQUIBB COMPANY-2023-021651

PATIENT
  Age: 79 Year
  Sex: Male
  Weight: 47 kg

DRUGS (6)
  1. HYDROXYUREA [Suspect]
     Active Substance: HYDROXYUREA
     Indication: Product used for unknown indication
     Dosage: THE ORAL ADMINISTRATION OF HYDREA WAS STARTED 5 (MONDAY TO FRIDAY) 500 MG/DAY AFTER BREAKFAST. TH...
     Route: 048
     Dates: start: 20190101
  2. HYDROXYUREA [Suspect]
     Active Substance: HYDROXYUREA
     Indication: Essential thrombocythaemia
     Dosage: THE ORAL ADMINISTRATION OF HYDREA WAS STARTED 5 (MONDAY TO FRIDAY) 500 MG/DAY AFTER BREAKFAST. TH...
     Route: 048
     Dates: start: 20190101
  3. ASPIRIN [Concomitant]
     Active Substance: ASPIRIN
     Indication: Product used for unknown indication
     Route: 048
  4. DICLOFENAC SODIUM [Concomitant]
     Active Substance: DICLOFENAC SODIUM
     Indication: Product used for unknown indication
     Route: 048
  5. REBAMIPIDE [Concomitant]
     Active Substance: REBAMIPIDE
     Indication: Product used for unknown indication
     Route: 048
  6. PREGABALIN [Concomitant]
     Active Substance: PREGABALIN
     Indication: Product used for unknown indication
     Route: 048

REACTIONS (3)
  - Spinal compression fracture [Recovered/Resolved]
  - Osteoporosis [Not Recovered/Not Resolved]
  - Fall [Unknown]

NARRATIVE: CASE EVENT DATE: 20221013
